FAERS Safety Report 7158209-2 (Version None)
Quarter: 2010Q4

REPORT INFORMATION
  Report Type: 
  Country: None (occurrence: None)
  Receive Date: 20101214
  Receipt Date: 20100415
  Transmission Date: 20110411
  Serious: No
  Sender: FDA-Public Use
  Company Number: US-ASTRAZENECA-2010SE12894

PATIENT
  Age: 69 Year
  Sex: Female
  Weight: 54.4 kg

DRUGS (10)
  1. CRESTOR [Suspect]
     Indication: BLOOD CHOLESTEROL INCREASED
     Route: 048
     Dates: start: 20100106
  2. CRESTOR [Suspect]
     Route: 048
     Dates: start: 20100308
  3. CRESTOR [Suspect]
     Route: 048
  4. NIASPAN [Suspect]
     Indication: HYPERLIPIDAEMIA
     Route: 048
  5. OTHER STATINS [Suspect]
     Route: 065
  6. ATENOLOL [Concomitant]
  7. CLONIDINE [Concomitant]
     Indication: HOT FLUSH
  8. FISH OIL [Concomitant]
  9. TUMS [Concomitant]
     Indication: BONE DISORDER
  10. ASPIRIN [Concomitant]
     Indication: CARDIAC DISORDER

REACTIONS (5)
  - HIGH DENSITY LIPOPROTEIN DECREASED [None]
  - MUSCLE SPASMS [None]
  - MUSCULAR WEAKNESS [None]
  - MYALGIA [None]
  - PAIN [None]
